FAERS Safety Report 9645391 (Version 1)
Quarter: 2013Q4

REPORT INFORMATION
  Report Type: Spontaneous
  Country: SE (occurrence: SE)
  Receive Date: 20131025
  Receipt Date: 20131025
  Transmission Date: 20140711
  Serious: Yes (Other)
  Sender: FDA-Public Use
  Company Number: SE-PFIZER INC-2013301223

PATIENT
  Age: 71 Year
  Sex: Male

DRUGS (4)
  1. VIAGRA [Suspect]
     Indication: ERECTILE DYSFUNCTION
     Dosage: 50 MG, UNK
     Route: 048
     Dates: start: 20130810, end: 20130810
  2. ATENOLOL ACCORD [Concomitant]
     Dosage: UNK
  3. ALLOPURINOL ^NYCOMED^ [Concomitant]
     Dosage: 100 MG, UNK
  4. TROMBYL [Concomitant]
     Dosage: 75 MG, UNK

REACTIONS (4)
  - Chills [Recovered/Resolved]
  - Tachycardia [Recovered/Resolved]
  - Headache [Recovered/Resolved]
  - Heart rate irregular [Recovered/Resolved]
